FAERS Safety Report 4333660-4 (Version None)
Quarter: 2004Q2

REPORT INFORMATION
  Report Type: 
  Country: None (occurrence: None)
  Receive Date: 20040405
  Receipt Date: 20040405
  Transmission Date: 20050107
  Serious: No
  Sender: FDA-Public Use
  Company Number: None

PATIENT
  Sex: Male
  Weight: 77 kg

DRUGS (2)
  1. MAXIPIME [Suspect]
     Indication: OSTEOMYELITIS
     Dosage: 2 G
     Dates: start: 20040223
  2. MAXIPIME [Suspect]
     Indication: OSTEOMYELITIS
     Dosage: 2 G
     Dates: start: 20040319

REACTIONS (1)
  - NEUTROPENIA [None]
